FAERS Safety Report 8504404-7 (Version None)
Quarter: 2012Q3

REPORT INFORMATION
  Report Type: 
  Country: None (occurrence: None)
  Receive Date: 20120711
  Receipt Date: 20120705
  Transmission Date: 20120928
  Serious: No
  Sender: FDA-Public Use
  Company Number: US-PFIZER INC-2012161881

PATIENT
  Sex: Female
  Weight: 132 kg

DRUGS (12)
  1. CELEBREX [Suspect]
  2. CELEBREX [Suspect]
     Indication: SPINAL OSTEOARTHRITIS
  3. OXYCODONE HCL AND ACETAMINOPHEN [Concomitant]
     Dosage: UNK
  4. HYDROCHLOROTHIAZIDE [Concomitant]
     Dosage: UNK
  5. CELEBREX [Suspect]
     Indication: DISLOCATION OF VERTEBRA
     Dosage: UNK, 1X/DAY
     Route: 048
  6. PRISTIQ [Suspect]
     Indication: DEPRESSION
     Dosage: 50 MG, 1X/DAY
     Route: 048
  7. KADIAN [Concomitant]
     Dosage: 50 MG, UNK
  8. XANAX [Concomitant]
     Dosage: UNK
  9. LEVOTHYROXINE [Concomitant]
     Dosage: 100 UG, UNK
  10. CELEBREX [Suspect]
     Indication: INTERVERTEBRAL DISC PROTRUSION
  11. ATENOLOL [Concomitant]
     Indication: HYPERTENSION
     Dosage: UNK
  12. OXYCODONE [Concomitant]
     Dosage: 5 MG, UNK

REACTIONS (4)
  - RASH PRURITIC [None]
  - MIDDLE INSOMNIA [None]
  - THERAPEUTIC RESPONSE UNEXPECTED [None]
  - BACK PAIN [None]
